FAERS Safety Report 23106257 (Version 1)
Quarter: 2023Q4

REPORT INFORMATION
  Report Type: Spontaneous
  Country: US (occurrence: US)
  Receive Date: 20231025
  Receipt Date: 20231025
  Transmission Date: 20240110
  Serious: No
  Sender: FDA-Public Use
  Company Number: US-INCYTE CORPORATION-2023IN010880

PATIENT

DRUGS (1)
  1. JAKAFI [Suspect]
     Active Substance: RUXOLITINIB
     Indication: Myelofibrosis
     Dosage: 15 MILLIGRAM, Q12H
     Route: 048
     Dates: start: 202206

REACTIONS (4)
  - Faeces hard [Unknown]
  - Dyschezia [Unknown]
  - Anorectal discomfort [Unknown]
  - Constipation [Unknown]
